FAERS Safety Report 4998643-X (Version None)
Quarter: 2006Q2

REPORT INFORMATION
  Report Type: 
  Country: None (occurrence: None)
  Receive Date: 20060508
  Receipt Date: 20060425
  Transmission Date: 20061013
  Serious: Yes (Hospitalization)
  Sender: FDA-Public Use
  Company Number: 2006-01638

PATIENT
  Sex: Male

DRUGS (1)
  1. KENTERA (WATSON LABORATORIES) (OXYBUTYNIN) TRANSDERMAL PATCH, 3.9MG [Suspect]
     Dosage: TRANSDERMAL
     Route: 062

REACTIONS (1)
  - CONFUSIONAL STATE [None]
